FAERS Safety Report 9705420 (Version 2)
Quarter: 2013Q4

REPORT INFORMATION
  Report Type: Spontaneous
  Country: US (occurrence: US)
  Receive Date: 20131122
  Receipt Date: 20131217
  Transmission Date: 20140711
  Serious: Yes (Life-Threatening, Hospitalization, Other)
  Sender: FDA-Public Use
  Company Number: US-GLAXOSMITHKLINE-A1050846A

PATIENT
  Age: 48 Year
  Sex: Female
  Weight: 53.6 kg

DRUGS (3)
  1. BENLYSTA [Suspect]
     Indication: SYSTEMIC LUPUS ERYTHEMATOSUS
     Dosage: 10MGK EVERY 28 DAYS
     Route: 042
  2. PLAQUENIL [Concomitant]
  3. PREDNISONE [Concomitant]

REACTIONS (7)
  - Cytomegalovirus infection [Recovering/Resolving]
  - Viraemia [Recovering/Resolving]
  - Condition aggravated [Recovering/Resolving]
  - Colitis [Recovered/Resolved]
  - Bacteraemia [Recovered/Resolved]
  - Sepsis [Unknown]
  - Pyrexia [Unknown]
